FAERS Safety Report 8415163-0 (Version None)
Quarter: 2012Q2

REPORT INFORMATION
  Report Type: 
  Country: None (occurrence: None)
  Receive Date: 20120606
  Receipt Date: 20120531
  Transmission Date: 20120825
  Serious: No
  Sender: FDA-Public Use
  Company Number: US-PFIZER INC-2012131396

PATIENT
  Sex: Female

DRUGS (1)
  1. XALKORI [Suspect]
     Indication: TRACHEAL CANCER
     Dosage: 250 MG, 2X/DAY
     Dates: start: 20120406

REACTIONS (3)
  - HAEMOPTYSIS [None]
  - DISEASE PROGRESSION [None]
  - TRACHEAL CANCER [None]
